FAERS Safety Report 10078660 (Version 1)
Quarter: 2014Q2

REPORT INFORMATION
  Report Type: Spontaneous
  Country: GB (occurrence: GB)
  Receive Date: 20140415
  Receipt Date: 20140415
  Transmission Date: 20141212
  Serious: Yes (Other)
  Sender: FDA-Public Use
  Company Number: GB-AMGEN-GBRSP2014026111

PATIENT
  Sex: 0

DRUGS (5)
  1. XGEVA [Suspect]
     Indication: PRODUCT USED FOR UNKNOWN INDICATION
     Dosage: UNK
     Route: 065
  2. OXYCONTIN [Concomitant]
     Dosage: 30 MG, BID
  3. PREGABALIN [Concomitant]
     Indication: NEURALGIA
     Dosage: 150 UNK, TID
  4. PARACETAMOL [Concomitant]
  5. FASLODEX                           /01285001/ [Concomitant]

REACTIONS (1)
  - Malignant neoplasm of spinal cord [Unknown]
